FAERS Safety Report 24057670 (Version 4)
Quarter: 2025Q3

REPORT INFORMATION
  Report Type: Report from Study
  Country: US (occurrence: US)
  Receive Date: 20240706
  Receipt Date: 20250904
  Transmission Date: 20251021
  Serious: No
  Sender: TAKEDA
  Company Number: US-TAKEDA-2024TUS063072

PATIENT
  Sex: Male

DRUGS (12)
  1. PONATINIB [Suspect]
     Active Substance: PONATINIB
     Indication: Acute lymphocytic leukaemia
     Dosage: 30 MILLIGRAM, QD
  2. PONATINIB [Suspect]
     Active Substance: PONATINIB
     Dosage: 30 MILLIGRAM, Q2WEEKS
  3. PONATINIB [Suspect]
     Active Substance: PONATINIB
  4. PONATINIB [Suspect]
     Active Substance: PONATINIB
     Dosage: 30 MILLIGRAM, QD
  5. PONATINIB [Suspect]
     Active Substance: PONATINIB
     Dosage: 15 MILLIGRAM, QD
  6. Mycelex-3 [Concomitant]
  7. ZYPREXA [Concomitant]
     Active Substance: OLANZAPINE
  8. METOPROLOL TARTRATE [Concomitant]
     Active Substance: METOPROLOL TARTRATE
  9. SENNA LAXATIVE [Concomitant]
     Active Substance: SENNOSIDES
  10. ACYCLOVIR [Concomitant]
     Active Substance: ACYCLOVIR
  11. LEVAQUIN [Concomitant]
     Active Substance: LEVOFLOXACIN
  12. BACTRIM DS [Concomitant]
     Active Substance: SULFAMETHOXAZOLE\TRIMETHOPRIM

REACTIONS (4)
  - Product dose omission issue [Unknown]
  - Mucosal inflammation [Unknown]
  - Dysphagia [Unknown]
  - Candida infection [Unknown]
